FAERS Safety Report 9760345 (Version 2)
Quarter: 2015Q3

REPORT INFORMATION
  Report Type: Spontaneous
  Country: US (occurrence: US)
  Receive Date: 20131216
  Receipt Date: 20150806
  Transmission Date: 20151125
  Serious: No
  Sender: FDA-Public Use
  Company Number: US-GILEAD-2010-0029370

PATIENT
  Age: 79 Year
  Sex: Male
  Weight: 108.86 kg

DRUGS (22)
  1. ZOCOR [Concomitant]
     Active Substance: SIMVASTATIN
  2. PREDNISONE. [Concomitant]
     Active Substance: PREDNISONE
  3. HYTRIN [Concomitant]
     Active Substance: TERAZOSIN HYDROCHLORIDE
  4. NEXIUM [Concomitant]
     Active Substance: ESOMEPRAZOLE MAGNESIUM
  5. MAVIK [Concomitant]
     Active Substance: TRANDOLAPRIL
  6. ADULT ASPIRIN [Concomitant]
  7. LASIX [Concomitant]
     Active Substance: FUROSEMIDE
  8. MULTIVITAMIN [Concomitant]
     Active Substance: VITAMINS
  9. VITAMIN B-6 [Concomitant]
     Active Substance: PYRIDOXINE
  10. BACTRIM DS [Concomitant]
     Active Substance: SULFAMETHOXAZOLE\TRIMETHOPRIM
  11. MAG-OX [Concomitant]
     Active Substance: MAGNESIUM OXIDE
  12. KLOR-CON [Concomitant]
     Active Substance: POTASSIUM CHLORIDE
  13. CALCIUM [Concomitant]
     Active Substance: CALCIUM
  14. LETAIRIS [Suspect]
     Active Substance: AMBRISENTAN
     Indication: PULMONARY ARTERIAL HYPERTENSION
     Route: 048
     Dates: start: 20100430
  15. VITAMIN C [Concomitant]
     Active Substance: ASCORBIC ACID
  16. FISH OIL [Concomitant]
     Active Substance: FISH OIL
  17. WARFARIN [Concomitant]
     Active Substance: WARFARIN
  18. REVATIO [Concomitant]
     Active Substance: SILDENAFIL CITRATE
  19. GEMFIBROZIL. [Concomitant]
     Active Substance: GEMFIBROZIL
  20. METFORMIN [Concomitant]
     Active Substance: METFORMIN HYDROCHLORIDE
  21. SPIRIVA [Concomitant]
     Active Substance: TIOTROPIUM BROMIDE MONOHYDRATE
  22. RANEXA [Concomitant]
     Active Substance: RANOLAZINE

REACTIONS (1)
  - Dizziness [Unknown]
